FAERS Safety Report 11787471 (Version 1)
Quarter: 2015Q4

REPORT INFORMATION
  Report Type: Spontaneous
  Country: US (occurrence: US)
  Receive Date: 20151130
  Receipt Date: 20151130
  Transmission Date: 20160305
  Serious: Yes (Hospitalization, Other)
  Sender: FDA-Public Use
  Company Number: US-GLAXOSMITHKLINE-US2015GSK167717

PATIENT
  Age: 54 Year
  Sex: Male

DRUGS (2)
  1. LAMICTAL [Suspect]
     Active Substance: LAMOTRIGINE
     Indication: BLOOD CHOLESTEROL INCREASED
  2. LAMICTAL [Suspect]
     Active Substance: LAMOTRIGINE
     Indication: HYPERTENSION
     Dosage: UNK, U

REACTIONS (3)
  - Off label use [Unknown]
  - Cerebrovascular accident [Unknown]
  - Seizure [Unknown]

NARRATIVE: CASE EVENT DATE: 20141003
